FAERS Safety Report 7549295-6 (Version None)
Quarter: 2011Q2

REPORT INFORMATION
  Report Type: 
  Country: None (occurrence: None)
  Receive Date: 20110615
  Receipt Date: 20021213
  Transmission Date: 20111010
  Serious: Yes (Death, Other)
  Sender: FDA-Public Use
  Company Number: PHEH2002US10484

PATIENT
  Sex: Male

DRUGS (12)
  1. KEPPRA [Concomitant]
  2. PROTONIX [Concomitant]
  3. BACLOFEN [Concomitant]
  4. K-DUR [Concomitant]
  5. KLONOPIN [Concomitant]
  6. LASIX [Concomitant]
  7. CARDIZEM [Concomitant]
  8. TOPAMAX [Concomitant]
  9. DIGOXIN [Concomitant]
  10. COUMADIN [Concomitant]
  11. EXELON [Suspect]
     Indication: DEMENTIA ALZHEIMER'S TYPE
     Dosage: 1.5 MG, BID
     Dates: start: 20020115
  12. PREDNISONE [Concomitant]

REACTIONS (3)
  - RESPIRATORY ARREST [None]
  - DEATH [None]
  - HYPERHIDROSIS [None]
